FAERS Safety Report 9419645 (Version 2)
Quarter: 2013Q4

REPORT INFORMATION
  Report Type: Spontaneous
  Country: US (occurrence: None)
  Receive Date: 20130723
  Receipt Date: 20131120
  Transmission Date: 20140711
  Serious: Yes (Hospitalization, Other)
  Sender: FDA-Public Use
  Company Number: SYM-2013-06739

PATIENT
  Age: 43 Year
  Sex: Female

DRUGS (4)
  1. XENAZINE (TETRABENAZINE) (12.5 MILLIGRAM) (TETRABENAZINE) [Suspect]
     Indication: HUNTINGTON^S DISEASE
     Dosage: 6 IN 1 D
     Route: 048
     Dates: start: 2011
  2. AVONEX (INTERFERON BETA-1A) (INTERFERON BETA-1A) [Concomitant]
  3. CYMBALTA (DULOXETINE HYDROCHLORIDE) (DULOXETINE HYDROCHLORIDE) [Concomitant]
  4. LOSARTAN (LOSARTAN) (LOSARTAN) [Concomitant]

REACTIONS (1)
  - Bruxism [None]
